FAERS Safety Report 24807387 (Version 1)
Quarter: 2025Q1

REPORT INFORMATION
  Report Type: Spontaneous
  Country: NL (occurrence: NL)
  Receive Date: 20250105
  Receipt Date: 20250105
  Transmission Date: 20250409
  Serious: Yes (Disabling, Other)
  Sender: JUBILANT
  Company Number: None

PATIENT
  Age: 53 Year
  Sex: Male
  Weight: 80 kg

DRUGS (1)
  1. QUETIAPINE FUMARATE [Suspect]
     Active Substance: QUETIAPINE FUMARATE
     Indication: Schizophrenia
     Dosage: 300 MG, ONCE PER DAY (1DD 300MG TABLET (BUILT UP IN THE FIRST FEW DAYS))
     Route: 048
     Dates: start: 20241213

REACTIONS (1)
  - Cerebral infarction [Unknown]
